FAERS Safety Report 17538072 (Version 4)
Quarter: 2020Q4

REPORT INFORMATION
  Report Type: Report from Study
  Country: ES (occurrence: ES)
  Receive Date: 20200313
  Receipt Date: 20201102
  Transmission Date: 20210113
  Serious: Yes (Death, Hospitalization, Other)
  Sender: FDA-Public Use
  Company Number: ES-GLAXOSMITHKLINE-ES2020GSK016450

PATIENT
  Age: 69 Year
  Sex: Female

DRUGS (24)
  1. LORAZEPAM. [Concomitant]
     Active Substance: LORAZEPAM
     Indication: PROPHYLAXIS
     Dosage: 1 MG, QD
     Route: 048
     Dates: start: 20200116, end: 20200122
  2. ONDANSETRON [Concomitant]
     Active Substance: ONDANSETRON
     Dosage: 1 DF, QD
     Route: 042
     Dates: start: 20200116, end: 20200120
  3. LACTULOSA [Concomitant]
     Active Substance: LACTULOSE
     Indication: CONSTIPATION
     Dosage: 30 ML, TID
     Route: 048
     Dates: start: 20200115
  4. MIDAZOLAM. [Concomitant]
     Active Substance: MIDAZOLAM
     Indication: ABDOMINAL PAIN
     Dosage: 2 DF, BID
     Route: 042
     Dates: start: 20200122, end: 20200122
  5. MORPHINE [Concomitant]
     Active Substance: MORPHINE
     Indication: ABDOMINAL PAIN
     Dosage: 1 DF, QD
     Route: 042
     Dates: start: 20200122, end: 20200122
  6. COBIMETINIB. [Suspect]
     Active Substance: COBIMETINIB
     Indication: OVARIAN CANCER
     Dosage: 60 MG, QD
     Route: 048
     Dates: start: 20200113
  7. COBIMETINIB. [Suspect]
     Active Substance: COBIMETINIB
     Dosage: UNK
     Dates: start: 20200114
  8. BUSCAPINA COMPOSITUM [Concomitant]
     Active Substance: BUTYLSCOPOLAMINE BROMIDE\METAMIZOLE SODIUM
     Indication: ABDOMINAL PAIN
     Dosage: 1 DF, TID
     Route: 048
     Dates: start: 20200113, end: 20200115
  9. MEGESTROL [Concomitant]
     Active Substance: MEGESTROL
     Dosage: 160 MG, TID
     Route: 048
     Dates: start: 20200120
  10. METAMIZOL [Concomitant]
     Active Substance: METAMIZOLE SODIUM
     Dosage: 4 DF, QD
     Route: 042
     Dates: start: 20200120, end: 20200120
  11. COBIMETINIB. [Suspect]
     Active Substance: COBIMETINIB
     Dosage: 60 MG, QD
     Route: 048
     Dates: start: 20200117
  12. COBIMETINIB. [Suspect]
     Active Substance: COBIMETINIB
     Dosage: UNK
     Dates: start: 20200115
  13. METAMIZOL [Concomitant]
     Active Substance: METAMIZOLE SODIUM
     Indication: ABDOMINAL PAIN
     Dosage: 1 DF, PRN
     Route: 042
     Dates: start: 20200115, end: 20200122
  14. BUSCAPINA [Concomitant]
     Indication: ABDOMINAL PAIN
     Dosage: 1 DF, QD
     Route: 042
     Dates: start: 20200119
  15. DOMPERIDONA [Concomitant]
     Active Substance: DOMPERIDONE
     Indication: NAUSEA
     Dosage: 10 MG, TID
     Route: 048
     Dates: start: 20200115
  16. FENTANIL [Concomitant]
     Active Substance: FENTANYL
     Indication: ABDOMINAL PAIN
     Dosage: 12 UG, 1 IN 3 DAYS
     Route: 062
     Dates: start: 20200122, end: 20200122
  17. ONDANSETRON [Concomitant]
     Active Substance: ONDANSETRON
     Indication: VOMITING
     Dosage: 4 MG, PRN
     Route: 048
     Dates: start: 20200115
  18. FUROSEMIDA [Concomitant]
     Active Substance: FUROSEMIDE
     Indication: ASCITES
     Dosage: 1 DF, QD
     Route: 048
     Dates: start: 20191216, end: 20200115
  19. MEGESTROL [Concomitant]
     Active Substance: MEGESTROL
     Dosage: 160 MG, TID
     Route: 048
     Dates: start: 20200116, end: 20200122
  20. NIRAPARIB [Suspect]
     Active Substance: NIRAPARIB
     Indication: OVARIAN CANCER
     Dosage: 200 MG, QD
     Route: 048
     Dates: start: 20200113
  21. NIRAPARIB [Suspect]
     Active Substance: NIRAPARIB
     Dosage: 200 MG, QD
     Route: 048
     Dates: start: 20200116
  22. NIRAPARIB [Suspect]
     Active Substance: NIRAPARIB
     Dosage: UNK
     Dates: start: 20200114
  23. PANTOPRAZOL [Concomitant]
     Active Substance: PANTOPRAZOLE SODIUM
     Indication: ABDOMINAL PAIN
     Dosage: 40 MG, QD
     Route: 042
     Dates: start: 20200115, end: 20200122
  24. ONDANSETRON [Concomitant]
     Active Substance: ONDANSETRON
     Dosage: 1 DF, TID
     Route: 042
     Dates: start: 20200120, end: 20200122

REACTIONS (2)
  - Diarrhoea [Recovered/Resolved]
  - Gastrointestinal haemorrhage [Fatal]

NARRATIVE: CASE EVENT DATE: 20200114
